FAERS Safety Report 15228164 (Version 1)
Quarter: 2018Q3

REPORT INFORMATION
  Report Type: Spontaneous
  Country: CN (occurrence: CN)
  Receive Date: 20180801
  Receipt Date: 20180801
  Transmission Date: 20181010
  Serious: Yes (Other)
  Sender: FDA-Public Use
  Company Number: CN-LEO PHARMA-310234

PATIENT
  Age: 63 Year
  Sex: Male

DRUGS (2)
  1. PROTOPIC [Suspect]
     Active Substance: TACROLIMUS
     Indication: DERMATITIS ATOPIC
     Dates: start: 20150913, end: 20150922
  2. HYDROCORTISONE BUTYRATE. [Concomitant]
     Active Substance: HYDROCORTISONE BUTYRATE
     Indication: DERMATITIS ATOPIC
     Dates: start: 20150913, end: 20150922

REACTIONS (1)
  - Anaphylactic reaction [Recovering/Resolving]

NARRATIVE: CASE EVENT DATE: 20150915
